FAERS Safety Report 24639514 (Version 1)
Quarter: 2024Q4

REPORT INFORMATION
  Report Type: Spontaneous
  Country: US (occurrence: US)
  Receive Date: 20241119
  Receipt Date: 20241119
  Transmission Date: 20250114
  Serious: Yes (Hospitalization, Other)
  Sender: AMNEAL
  Company Number: US-AMNEAL PHARMACEUTICALS-2024-AMRX-04107

PATIENT
  Age: 3 Month
  Sex: Male

DRUGS (6)
  1. FLECAINIDE ACETATE [Suspect]
     Active Substance: FLECAINIDE ACETATE
     Indication: Arrhythmia
     Dosage: 80 MILLIGRAM/SQ. METER, QD
     Route: 065
  2. FLECAINIDE ACETATE [Suspect]
     Active Substance: FLECAINIDE ACETATE
     Indication: Supraventricular tachycardia
     Dosage: 60 MILLIGRAM/SQ. METER, QD
     Route: 065
  3. AMIODARONE [Suspect]
     Active Substance: AMIODARONE
     Indication: Supraventricular tachycardia
     Dosage: 2 MILLIGRAM/KILOGRAM, QD
     Route: 065
  4. AMIODARONE [Suspect]
     Active Substance: AMIODARONE
     Indication: Arrhythmia
     Dosage: 2 MILLIGRAM/KILOGRAM, QD (RESTARTED ON HOSPITAL DAY 4)
     Route: 065
  5. AMIODARONE [Suspect]
     Active Substance: AMIODARONE
     Dosage: MAINTENANCE THERAPY WHICH WAS INCREASED TO 5 MILLIGRAM/KILOGRAM, QD
     Route: 065
  6. ADENOSINE [Concomitant]
     Active Substance: ADENOSINE
     Indication: Product used for unknown indication
     Dosage: (0.02 MG/KG/DOSE) 2 DOSES
     Route: 065

REACTIONS (5)
  - Toxicity to various agents [Recovered/Resolved]
  - Respiratory distress [Recovered/Resolved]
  - Metabolic acidosis [Recovered/Resolved]
  - Electrocardiogram QRS complex prolonged [Recovered/Resolved]
  - Bradycardia [Recovered/Resolved]
